FAERS Safety Report 8300245-4 (Version None)
Quarter: 2012Q2

REPORT INFORMATION
  Report Type: 
  Country: None (occurrence: None)
  Receive Date: 20120417
  Receipt Date: 20120405
  Transmission Date: 20120825
  Serious: Yes (Other)
  Sender: FDA-Public Use
  Company Number: CRC-12-059

PATIENT
  Age: 88 Year
  Sex: Female
  Weight: 62 kg

DRUGS (9)
  1. DECADRON [Concomitant]
  2. SUCCINYLCHOLINE CHLORIDE [Concomitant]
  3. ETOMIDATE [Concomitant]
  4. VECURONIUM BROMIDE [Suspect]
     Dosage: 6 MG, TWICE, IV
     Route: 042
     Dates: start: 20120208
  5. PROPOFOL [Concomitant]
  6. ATIVAN [Concomitant]
  7. FENTANYL [Concomitant]
  8. MANNITOL [Concomitant]
  9. FOSPHENYTOIN [Concomitant]

REACTIONS (1)
  - DRUG INEFFECTIVE [None]
